FAERS Safety Report 20061018 (Version 1)
Quarter: 2021Q4

REPORT INFORMATION
  Report Type: Spontaneous
  Country: US (occurrence: None)
  Receive Date: 20211112
  Receipt Date: 20211112
  Transmission Date: 20220304
  Serious: Yes (Other)
  Sender: FDA-Public Use
  Company Number: US-ROCHE-2955397

PATIENT
  Sex: Male
  Weight: 104.87 kg

DRUGS (17)
  1. ESBRIET [Suspect]
     Active Substance: PIRFENIDONE
     Indication: Product used for unknown indication
     Dosage: 267MG ONLY ABOUT 2 OR 3 TIMES DAILY
     Route: 048
  2. CHLORDIAZEPOXIDE [Concomitant]
     Active Substance: CHLORDIAZEPOXIDE
     Dosage: 10-25 MG TABLET ORALLY Q12H PRN ABD CRAMPS
  3. AMITRIPTYLINE [Concomitant]
     Active Substance: AMITRIPTYLINE
     Dosage: 10-25 MG TABLET ORALLY Q12H PRN ABD CRAMPS
  4. ECOTRIN [Concomitant]
     Active Substance: ASPIRIN
     Dosage: DELAYED RELEASE TABLET
     Route: 048
  5. AMANTADINE HYDROCHLORIDE [Concomitant]
     Active Substance: AMANTADINE HYDROCHLORIDE
     Route: 048
  6. TRIAZOLAM [Concomitant]
     Active Substance: TRIAZOLAM
     Dosage: 1 TABLET AT BEDTIME AS NEED
     Route: 048
  7. ATORVASTATIN CALCIUM [Concomitant]
     Active Substance: ATORVASTATIN CALCIUM
     Dosage: 1 TABLET
     Route: 048
  8. ZETIA [Concomitant]
     Active Substance: EZETIMIBE
     Dosage: 1 TABLET
     Route: 048
  9. TRAMADOL [Concomitant]
     Active Substance: TRAMADOL
     Dosage: ONE TABLET ORALLY EVERY 4-6 HOURS PRN PAIN
     Route: 048
  10. GABAPENTIN [Concomitant]
     Active Substance: GABAPENTIN
     Dosage: 1 CAPSULE
     Route: 048
  11. LORAZEPAM [Concomitant]
     Active Substance: LORAZEPAM
     Dosage: 1 TABLET BEDTIME
     Route: 048
  12. CARVEDILOL [Concomitant]
     Active Substance: CARVEDILOL
     Dosage: 1 TABLET WITH FOOD
     Route: 048
  13. FEXOFENADINE HCL [Concomitant]
     Active Substance: FEXOFENADINE HYDROCHLORIDE
     Route: 048
  14. FLUTICASONE PROPIONATE [Concomitant]
     Active Substance: FLUTICASONE PROPIONATE
     Dosage: 50 MCG/ACT SUSPENSION 1 SPRAY IN EACH NOSTRIL NASALLY ONCE A DAY
  15. VITAMIN D3 [Concomitant]
     Active Substance: CHOLECALCIFEROL
     Dosage: 25 MCG (1000UT) CAPSULE
     Route: 048
  16. MIDODRINE HYDROCHLORIDE [Concomitant]
     Active Substance: MIDODRINE HYDROCHLORIDE
     Dosage: 1 TABLET
     Route: 048
  17. OMEPRAZOLE [Concomitant]
     Active Substance: OMEPRAZOLE
     Dosage: DELAYED RELEASE
     Route: 048

REACTIONS (2)
  - Fall [Unknown]
  - Hand fracture [Unknown]
